FAERS Safety Report 14638795 (Version 1)
Quarter: 2018Q1

REPORT INFORMATION
  Report Type: Spontaneous
  Country: FR (occurrence: FR)
  Receive Date: 20180315
  Receipt Date: 20180315
  Transmission Date: 20180509
  Serious: Yes (Other)
  Sender: FDA-Public Use
  Company Number: FR-MERCK KGAA-2043754

PATIENT
  Age: 50 Year
  Sex: Female
  Weight: 74.2 kg

DRUGS (1)
  1. NOVOTHYROX [Suspect]
     Active Substance: LEVOTHYROXINE SODIUM
     Indication: HYPOTHYROIDISM

REACTIONS (17)
  - Nausea [None]
  - Oedema [None]
  - Depression [None]
  - Feeling abnormal [None]
  - Sleep disorder [None]
  - Pain [None]
  - Fatigue [None]
  - Weight increased [None]
  - Loss of libido [None]
  - Antisocial behaviour [None]
  - Dizziness [None]
  - Asthenia [None]
  - Diarrhoea [None]
  - Negative thoughts [None]
  - Emotional disorder [None]
  - Psychiatric symptom [None]
  - Blood thyroid stimulating hormone increased [None]

NARRATIVE: CASE EVENT DATE: 2017
